FAERS Safety Report 8326025-1 (Version None)
Quarter: 2012Q2

REPORT INFORMATION
  Report Type: 
  Country: None (occurrence: None)
  Receive Date: 20120501
  Receipt Date: 20110427
  Transmission Date: 20120825
  Serious: No
  Sender: FDA-Public Use
  Company Number: US-SANOFI-AVENTIS-2011SA028618

PATIENT
  Sex: Female

DRUGS (8)
  1. APIDRA [Suspect]
     Dosage: DOSE:10 UNIT(S)
     Route: 058
     Dates: start: 20110401, end: 20110401
  2. APIDRA [Suspect]
     Indication: TYPE 2 DIABETES MELLITUS
     Dosage: DOSE:5 UNIT(S)
     Route: 058
     Dates: start: 20110414
  3. AMARYL [Concomitant]
     Dates: start: 20080101, end: 20110415
  4. SOLOSTAR [Suspect]
     Indication: TYPE 2 DIABETES MELLITUS
     Dates: start: 20110414
  5. SOLOSTAR [Concomitant]
     Dates: start: 20080101, end: 20110415
  6. APIDRA [Suspect]
     Dosage: DOSE: 8 UNITS WITH BREAKFAST, 4 UNITS WITH LUNCH AND 8 UNITS WITH DINNER
     Route: 058
     Dates: start: 20110401
  7. LANTUS [Concomitant]
     Dosage: DOSE:8 UNIT(S)
     Dates: start: 20080101, end: 20110415
  8. METFORMIN HCL [Concomitant]

REACTIONS (4)
  - BLOOD GLUCOSE INCREASED [None]
  - TREMOR [None]
  - ASTHENIA [None]
  - BLOOD GLUCOSE DECREASED [None]
